FAERS Safety Report 7511024-X (Version None)
Quarter: 2011Q2

REPORT INFORMATION
  Report Type: 
  Country: None (occurrence: None)
  Receive Date: 20110531
  Receipt Date: 20110519
  Transmission Date: 20111010
  Serious: Yes (Other)
  Sender: FDA-Public Use
  Company Number: US-PFIZER INC-2011108829

PATIENT
  Sex: Female
  Weight: 62.132 kg

DRUGS (12)
  1. CARISOPRODOL [Concomitant]
     Dosage: 350 MG TWO IN EVERY SIX HOURS
  2. GABAPENTIN [Suspect]
     Indication: NEURALGIA
     Dosage: 600 MG, 3X/DAY
  3. LEXAPRO [Concomitant]
     Dosage: 20 MG
  4. NEXIUM [Concomitant]
     Indication: GASTRIC ULCER
     Dosage: 40 MG, ONCE A DAY
  5. GABAPENTIN [Suspect]
     Dosage: 200 MG, 3X/DAY
     Route: 048
     Dates: start: 20100901, end: 20110511
  6. AMBIEN [Concomitant]
     Dosage: 10 MG, UNK
  7. OXYCODONE [Concomitant]
     Dosage: 75/325 MG, UNK
  8. ESTRADIOL [Concomitant]
     Dosage: 0.5 MG, UNK
  9. OXYCONTIN [Concomitant]
     Dosage: 20 MG, 2X/DAY
  10. LYRICA [Suspect]
     Indication: NEURALGIA
     Dosage: 50 MG, 3X/DAY
     Route: 048
     Dates: start: 20110513
  11. LEVOXYL [Concomitant]
     Indication: HYPERTHYROIDISM
     Dosage: 100 MCG ONCE A DAY
  12. AMICAR [Concomitant]
     Dosage: 24 MCG, 2X/DAY

REACTIONS (12)
  - NEURALGIA [None]
  - SOMNOLENCE [None]
  - DYSARTHRIA [None]
  - CLUMSINESS [None]
  - LOSS OF CONSCIOUSNESS [None]
  - DIZZINESS [None]
  - NERVOUSNESS [None]
  - DRUG INEFFECTIVE [None]
  - TREMOR [None]
  - FATIGUE [None]
  - SPEECH DISORDER [None]
  - INAPPROPRIATE AFFECT [None]
